FAERS Safety Report 6504275-4 (Version None)
Quarter: 2009Q4

REPORT INFORMATION
  Report Type: 
  Country: None (occurrence: None)
  Receive Date: 20091217
  Receipt Date: 20091210
  Transmission Date: 20100525
  Serious: Yes (Other)
  Sender: FDA-Public Use
  Company Number: GB-PFIZER INC-2007076934

PATIENT
  Age: 78 Year
  Sex: Male
  Weight: 85 kg

DRUGS (8)
  1. CHAMPIX [Suspect]
     Dosage: 1 MG, 2X/DAY
     Route: 048
     Dates: start: 20070401
  2. BECLOMETHASONE DIPROPIONATE [Concomitant]
     Route: 055
     Dates: start: 20020101
  3. DIGOXIN [Concomitant]
     Route: 048
     Dates: start: 20030101
  4. FUROSEMIDE [Concomitant]
     Route: 048
     Dates: start: 20030101
  5. OXYBUTYNIN CHLORIDE [Concomitant]
     Route: 048
     Dates: start: 20030101
  6. PHYLLOCONTIN [Concomitant]
     Route: 048
     Dates: start: 20030101
  7. ALBUTEROL [Concomitant]
     Route: 055
     Dates: start: 19950101
  8. WARFARIN SODIUM [Concomitant]
     Route: 048
     Dates: start: 20030101

REACTIONS (1)
  - GYNAECOMASTIA [None]
